FAERS Safety Report 7420603-X (Version None)
Quarter: 2011Q2

REPORT INFORMATION
  Report Type: 
  Country: None (occurrence: None)
  Receive Date: 20110407
  Receipt Date: 20110325
  Transmission Date: 20111010
  Serious: Yes (Other)
  Sender: FDA-Public Use
  Company Number: 2011P1005436

PATIENT
  Age: 36 Year
  Sex: Male
  Weight: 72.5755 kg

DRUGS (7)
  1. FENTANYL-75 [Suspect]
     Indication: PAIN
     Dosage: 1 PATCH; Q48HR; TDER
     Route: 062
     Dates: start: 20110227, end: 20110303
  2. FENTANYL-75 [Suspect]
     Indication: SHOULDER OPERATION
     Dosage: 1 PATCH; Q48HR; TDER
     Route: 062
     Dates: start: 20110227, end: 20110303
  3. FENTANYL-75 [Suspect]
     Indication: ROAD TRAFFIC ACCIDENT
     Dosage: 1 PATCH; Q48HR; TDER
     Route: 062
     Dates: start: 20110227, end: 20110303
  4. FENTANYL-75 [Suspect]
     Indication: SURGERY
     Dosage: 1 PATCH; Q48HR; TDER
     Route: 062
     Dates: start: 20110227, end: 20110303
  5. DILAUDID [Concomitant]
  6. AMITIZA [Concomitant]
  7. TRAZODONE HCL [Concomitant]

REACTIONS (7)
  - DEHYDRATION [None]
  - ACCIDENTAL EXPOSURE [None]
  - DEVICE LEAKAGE [None]
  - CONFUSIONAL STATE [None]
  - AMNESIA [None]
  - DRUG WITHDRAWAL SYNDROME [None]
  - PRODUCT ADHESION ISSUE [None]
